FAERS Safety Report 4886866-X (Version None)
Quarter: 2006Q1

REPORT INFORMATION
  Report Type: 
  Country: None (occurrence: None)
  Receive Date: 20060119
  Receipt Date: 20060110
  Transmission Date: 20060701
  Serious: Yes (Other)
  Sender: FDA-Public Use
  Company Number: 200610026BYL

PATIENT
  Age: 82 Year
  Sex: Male

DRUGS (3)
  1. AVELOX [Suspect]
     Indication: PNEUMONIA
     Dosage: 400 MG, TOTAL DAILY, ORAL
     Route: 048
     Dates: start: 20051228, end: 20051229
  2. AMARYL [Suspect]
     Indication: DIABETES MELLITUS
     Dosage: 6 MG, TOTAL DAILY, ORAL
     Route: 048
  3. METFORMIN HCL [Suspect]
     Indication: DIABETES MELLITUS
     Dosage: 750 MG, TOTAL DAILY, ORAL
     Route: 048

REACTIONS (1)
  - HYPOGLYCAEMIA [None]
